APPROVED DRUG PRODUCT: CLOBETASOL PROPIONATE (EMOLLIENT)
Active Ingredient: CLOBETASOL PROPIONATE
Strength: 0.05%
Dosage Form/Route: CREAM;TOPICAL
Application: A209411 | Product #001 | TE Code: AB2
Applicant: BEACH PRODUCTS INC
Approved: Aug 21, 2017 | RLD: No | RS: No | Type: RX